FAERS Safety Report 7962274-X (Version None)
Quarter: 2011Q4

REPORT INFORMATION
  Report Type: 
  Country: None (occurrence: None)
  Receive Date: 20111207
  Receipt Date: 20111128
  Transmission Date: 20120403
  Serious: Yes (Other)
  Sender: FDA-Public Use
  Company Number: DE-TEVA-311029GER

PATIENT
  Sex: Male

DRUGS (2)
  1. ENALAPRIL MALEATE AND HYDROCHLOROTHIAZIDE [Suspect]
     Dosage: 1 DF = 10 MG ENALAPRIL AND 25 MG HYDROCHLOROTHIAZIDE
     Route: 048
  2. INSULIN [Concomitant]

REACTIONS (2)
  - PRODUCT SUBSTITUTION ISSUE [None]
  - LEUKAEMIA [None]
